FAERS Safety Report 13634183 (Version 1)
Quarter: 2017Q2

REPORT INFORMATION
  Report Type: Spontaneous
  Country: US (occurrence: US)
  Receive Date: 20170531
  Receipt Date: 20170531
  Transmission Date: 20170830
  Serious: No
  Sender: FDA-Public Use
  Company Number: US-ASTELLAS-1611406

PATIENT
  Sex: Female

DRUGS (6)
  1. LOSARTAN. [Concomitant]
     Active Substance: LOSARTAN
  2. DETROL [Concomitant]
     Active Substance: TOLTERODINE TARTRATE
  3. TARCEVA [Suspect]
     Active Substance: ERLOTINIB HYDROCHLORIDE
     Indication: PRODUCT USED FOR UNKNOWN INDICATION
     Route: 048
     Dates: start: 20140906
  4. CELEBREX [Concomitant]
     Active Substance: CELECOXIB
  5. CLARITIN [Concomitant]
     Active Substance: LORATADINE
  6. FLAXSEED [Concomitant]
     Active Substance: FLAX SEED

REACTIONS (1)
  - Metastatic neoplasm [Unknown]
